FAERS Safety Report 14601645 (Version 1)
Quarter: 2018Q1

REPORT INFORMATION
  Report Type: Report from Study
  Country: IE (occurrence: IE)
  Receive Date: 20180306
  Receipt Date: 20180306
  Transmission Date: 20180509
  Serious: Yes (Hospitalization, Other)
  Sender: FDA-Public Use
  Company Number: IE-AMGEN-IRLSL2018028121

PATIENT
  Sex: Female

DRUGS (1)
  1. ARANESP [Suspect]
     Active Substance: DARBEPOETIN ALFA
     Indication: NEPHROBLASTOMA
     Dosage: 20 MCG, Q2WK
     Route: 058
     Dates: start: 20170213

REACTIONS (2)
  - Off label use [Unknown]
  - Haemoglobin increased [Unknown]
